FAERS Safety Report 9808330 (Version 2)
Quarter: 2014Q1

REPORT INFORMATION
  Report Type: Spontaneous
  Country: US (occurrence: US)
  Receive Date: 20140110
  Receipt Date: 20140110
  Transmission Date: 20141002
  Serious: Yes (Disabling)
  Sender: FDA-Public Use
  Company Number: US-GE HEALTHCARE MEDICAL DIAGNOSTICS-OSCN-PR-0911S-0497

PATIENT
  Sex: Female

DRUGS (2)
  1. OMNISCAN [Suspect]
     Indication: RENAL TRANSPLANT
     Route: 042
     Dates: start: 20020823, end: 20020823
  2. GADOLINIUM (UNSPECIFIED) [Suspect]
     Indication: MENTAL STATUS CHANGES
     Dates: start: 20011017, end: 20011017

REACTIONS (1)
  - Nephrogenic systemic fibrosis [Not Recovered/Not Resolved]
